FAERS Safety Report 10055975 (Version 1)
Quarter: 2014Q2

REPORT INFORMATION
  Report Type: Spontaneous
  Country: AU (occurrence: None)
  Receive Date: 20140401
  Receipt Date: 20140401
  Transmission Date: 20141212
  Serious: Yes (Hospitalization)
  Sender: FDA-Public Use
  Company Number: 2014MPI00250

PATIENT
  Age: 33 Year
  Sex: Male
  Weight: 105.9 kg

DRUGS (7)
  1. BRENTUXIMAB VEDOTIN (BRENTUXIMAB VEDOTIN) INJECTION [Suspect]
     Indication: HODGKIN^S DISEASE
     Route: 042
     Dates: start: 20140122, end: 20140305
  2. VINBLASTINE (VINBLASTINE SULFATE) INJECTION [Suspect]
     Indication: HODGKIN^S DISEASE
     Route: 042
     Dates: start: 20140122, end: 20140305
  3. DOXORUBICIN (DOXORUBICIN) INJECTION [Suspect]
     Indication: HODGKIN^S DISEASE
     Route: 042
     Dates: start: 20140122, end: 20140305
  4. DACARBAZINE (DACARBAZINE) INJECTION [Suspect]
     Indication: HODGKIN^S DISEASE
     Dates: start: 20140122, end: 20140305
  5. PANADOL (PARACETAMOL) [Concomitant]
  6. ONDANSETRON (ONDANSETRON) [Concomitant]
  7. MORPHINE (MORPHINE HYDROCHLORIDE) [Concomitant]

REACTIONS (6)
  - Dehydration [None]
  - Abdominal pain [None]
  - Hunger [None]
  - Sinus tachycardia [None]
  - Aspartate aminotransferase increased [None]
  - Alanine aminotransferase increased [None]
